FAERS Safety Report 18030136 (Version 2)
Quarter: 2025Q2

REPORT INFORMATION
  Report Type: Spontaneous
  Country: CA (occurrence: CA)
  Receive Date: 20200715
  Receipt Date: 20250404
  Transmission Date: 20250716
  Serious: Yes (Other)
  Sender: ANI
  Company Number: CA-ANIPHARMA-2020-CA-001318

PATIENT
  Sex: Female
  Weight: 58 kg

DRUGS (3)
  1. ANASTROZOLE [Suspect]
     Active Substance: ANASTROZOLE
     Indication: Breast cancer metastatic
     Route: 048
     Dates: start: 201308, end: 201808
  2. IBRANCE [Suspect]
     Active Substance: PALBOCICLIB
     Route: 048
  3. LETROZOLE [Suspect]
     Active Substance: LETROZOLE
     Route: 048
     Dates: start: 201306, end: 201308

REACTIONS (3)
  - Breast cancer metastatic [Unknown]
  - Disease progression [Unknown]
  - Drug intolerance [Unknown]
